FAERS Safety Report 12908652 (Version 1)
Quarter: 2016Q4

REPORT INFORMATION
  Report Type: Spontaneous
  Country: GB (occurrence: GB)
  Receive Date: 20161103
  Receipt Date: 20161103
  Transmission Date: 20170207
  Serious: Yes (Hospitalization, Disabling, Other)
  Sender: FDA-Public Use
  Company Number: GB-PFIZER INC-2016505767

PATIENT
  Age: 51 Year
  Sex: Female
  Weight: 80 kg

DRUGS (4)
  1. DOXAZOSIN MESILATE [Suspect]
     Active Substance: DOXAZOSIN MESYLATE
     Indication: MALIGNANT HYPERTENSION
     Dosage: 4 MG, UNK
     Route: 048
  2. AMLODIPINE [Concomitant]
     Active Substance: AMLODIPINE BESYLATE
     Dosage: UNK
     Dates: start: 20160726, end: 20160728
  3. RAMIPRIL. [Concomitant]
     Active Substance: RAMIPRIL
     Dosage: 2.5 MG, UNK
     Dates: start: 20160825
  4. DOXAZOSIN MESILATE [Suspect]
     Active Substance: DOXAZOSIN MESYLATE
     Dosage: 12 MG, 1X/DAY
     Route: 048
     Dates: start: 20160728

REACTIONS (11)
  - Vision blurred [Recovering/Resolving]
  - Paraesthesia [Recovering/Resolving]
  - Dyspnoea [Recovering/Resolving]
  - Agitation [Recovering/Resolving]
  - Palpitations [Recovering/Resolving]
  - Urinary incontinence [Recovering/Resolving]
  - Pallor [Recovering/Resolving]
  - Malaise [Recovering/Resolving]
  - Extrasystoles [Recovering/Resolving]
  - Chest discomfort [Recovering/Resolving]
  - Abnormal dreams [Recovering/Resolving]

NARRATIVE: CASE EVENT DATE: 20160730
